FAERS Safety Report 8274824-7 (Version None)
Quarter: 2012Q2

REPORT INFORMATION
  Report Type: 
  Country: None (occurrence: None)
  Receive Date: 20120411
  Receipt Date: 20120313
  Transmission Date: 20120825
  Serious: No
  Sender: FDA-Public Use
  Company Number: US-BAYER-2011-101851

PATIENT
  Age: 60 Year
  Sex: Male

DRUGS (4)
  1. LISINOPRIL [Concomitant]
  2. COREG [Concomitant]
  3. LEVITRA [Suspect]
     Indication: ERECTILE DYSFUNCTION
     Dosage: 10 MG, TIW
     Route: 048
     Dates: start: 20101001, end: 20120311
  4. ZOCOR [Concomitant]

REACTIONS (4)
  - HEADACHE [None]
  - ERECTION INCREASED [None]
  - NO ADVERSE EVENT [None]
  - ERECTILE DYSFUNCTION [None]
